FAERS Safety Report 8860316 (Version 1)
Quarter: 2012Q4

REPORT INFORMATION
  Report Type: 
  Country: JP (occurrence: JP)
  Receive Date: 20121025
  Receipt Date: 20121025
  Transmission Date: 20130627
  Serious: Yes (Other)
  Sender: FDA-Public Use
  Company Number: JP-009507513-1210JPN007432

PATIENT
  Age: 70 Year
  Sex: Male

DRUGS (7)
  1. JANUVIA TABLETS 50MG [Suspect]
     Indication: TYPE 2 DIABETES MELLITUS
     Dosage: 50 mg, qd
     Route: 048
     Dates: start: 20121005, end: 20121009
  2. PRAZAXA [Suspect]
     Indication: ATRIAL FIBRILLATION
     Dosage: 150 mg, bid
     Route: 048
     Dates: start: 201110, end: 20121005
  3. NORVASC [Concomitant]
     Indication: HYPERTENSION
     Dosage: 5 mg, bid
     Route: 048
  4. BLOPRESS [Concomitant]
     Indication: HYPERTENSION
     Dosage: 8 mg, qd
     Route: 048
  5. MAINTATE [Concomitant]
     Indication: ATRIAL FIBRILLATION
     Dosage: UNK, qd
     Route: 048
  6. SUNRYTHM [Concomitant]
     Indication: ATRIAL FIBRILLATION
     Dosage: 50 mg, bid
     Route: 048
  7. WARFARIN [Concomitant]
     Indication: ATRIAL FIBRILLATION

REACTIONS (2)
  - Bladder cancer [Unknown]
  - Haematuria [Recovered/Resolved]
